FAERS Safety Report 13913734 (Version 1)
Quarter: 2017Q3

REPORT INFORMATION
  Report Type: Spontaneous
  Country: DE (occurrence: DE)
  Receive Date: 20170829
  Receipt Date: 20170829
  Transmission Date: 20171127
  Serious: Yes (Other)
  Sender: FDA-Public Use
  Company Number: DE-MYLANLABS-2017M1052438

PATIENT

DRUGS (5)
  1. SERTRALINE [Suspect]
     Active Substance: SERTRALINE HYDROCHLORIDE
     Indication: DEPRESSION
     Dosage: 200 [MG/D ]/ BEGIN OF DRUG TREATMENT NOT EXACTLY KNOWN; PERHAPS DURING THE ENTIRE PREGNANCY
     Route: 064
  2. IBUPROFEN. [Concomitant]
     Active Substance: IBUPROFEN
     Indication: PRODUCT USED FOR UNKNOWN INDICATION
     Dosage: UNK
     Route: 064
  3. TAVOR (LORAZEPAM) [Suspect]
     Active Substance: LORAZEPAM
     Indication: PANIC DISORDER
  4. FOLIO FORTE [Concomitant]
     Active Substance: FOLIC ACID\VITAMINS
     Indication: PROPHYLAXIS OF NEURAL TUBE DEFECT
     Dosage: 0.8 [MG/D ]
     Route: 064
     Dates: start: 20160629, end: 20170117
  5. TAVOR (LORAZEPAM) [Suspect]
     Active Substance: LORAZEPAM
     Indication: ANXIETY DISORDER
     Dosage: 5 [MG/D ]/ DOSE REDUCTION TO 1 MG
     Route: 064

REACTIONS (5)
  - Respiratory disorder neonatal [Recovered/Resolved]
  - Nasal congestion [Recovered/Resolved]
  - Foetal exposure during pregnancy [Recovered/Resolved]
  - Tremor neonatal [Recovered/Resolved]
  - Hypotonia neonatal [Recovered/Resolved]

NARRATIVE: CASE EVENT DATE: 20170117
